FAERS Safety Report 6464325-0 (Version None)
Quarter: 2009Q4

REPORT INFORMATION
  Report Type: 
  Country: None (occurrence: None)
  Receive Date: 20091130
  Receipt Date: 20091130
  Transmission Date: 20100525
  Serious: Yes (Other)
  Sender: FDA-Public Use
  Company Number: None

PATIENT
  Sex: Female
  Weight: 45.3597 kg

DRUGS (1)
  1. PROZAC [Suspect]
     Indication: DEPRESSION
     Dosage: 40 MG QAM ORAL
     Route: 048
     Dates: start: 20090108, end: 20090216

REACTIONS (4)
  - ANGER [None]
  - CRYING [None]
  - FRUSTRATION [None]
  - PRODUCT SUBSTITUTION ISSUE [None]
